FAERS Safety Report 6857317-0 (Version None)
Quarter: 2010Q3

REPORT INFORMATION
  Report Type: 
  Country: None (occurrence: None)
  Receive Date: 20100719
  Receipt Date: 20100707
  Transmission Date: 20110219
  Serious: Yes (Other)
  Sender: FDA-Public Use
  Company Number: US-PFIZER INC-2010085562

PATIENT
  Sex: Female

DRUGS (4)
  1. NEURONTIN [Suspect]
     Indication: NEURALGIA
     Dosage: 300 MG
     Dates: start: 20100629
  2. NEURONTIN [Suspect]
     Dosage: 400 MG
  3. NEURONTIN [Suspect]
     Dosage: 700 MG
  4. EFFEXOR [Suspect]
     Indication: NEURALGIA
     Dosage: UNK

REACTIONS (4)
  - BIPOLAR DISORDER [None]
  - INTENTIONAL DRUG MISUSE [None]
  - MANIA [None]
  - TREMOR [None]
